FAERS Safety Report 14999222 (Version 2)
Quarter: 2018Q2

REPORT INFORMATION
  Report Type: Report from Study
  Country: US (occurrence: US)
  Receive Date: 20180612
  Receipt Date: 20180614
  Transmission Date: 20180711
  Serious: Yes (Hospitalization)
  Sender: FDA-Public Use
  Company Number: US-ROCHE-2135818

PATIENT
  Sex: Female

DRUGS (4)
  1. ERIBULIN MESYLATE [Suspect]
     Active Substance: ERIBULIN MESYLATE
     Indication: INFLAMMATORY CARCINOMA OF THE BREAST
     Dosage: 1.4 MG/M2 BY VEIN OVER ABOUT 5 MINUTES ON DAYS 1 AND 8 OF CYCLES 1-4.
     Route: 042
  2. ATEZOLIZUMAB. [Suspect]
     Active Substance: ATEZOLIZUMAB
     Indication: INFLAMMATORY CARCINOMA OF THE BREAST
     Dosage: 840 MG BY VEIN OVER ABOUT 30 MINUTES EVERY 2 WEEKS WHILE ON STUDY.
     Route: 042
  3. COBIMETINIB. [Suspect]
     Active Substance: COBIMETINIB
     Indication: INFLAMMATORY CARCINOMA OF THE BREAST
     Route: 065
  4. KEFLEX [Concomitant]
     Active Substance: CEPHALEXIN
     Indication: URINARY TRACT INFECTION

REACTIONS (1)
  - Lung infection [Unknown]

NARRATIVE: CASE EVENT DATE: 20180522
